FAERS Safety Report 5689430-8 (Version None)
Quarter: 2008Q1

REPORT INFORMATION
  Report Type: 
  Country: None (occurrence: None)
  Receive Date: 20080331
  Receipt Date: 20080319
  Transmission Date: 20080703
  Serious: Yes (Death, Hospitalization, Other)
  Sender: FDA-Public Use
  Company Number: US-AMGEN-US214210

PATIENT
  Sex: Female
  Weight: 59.6 kg

DRUGS (11)
  1. PROCRIT [Suspect]
     Indication: MYELODYSPLASTIC SYNDROME
     Route: 065
     Dates: start: 20050501, end: 20061212
  2. ARANESP [Suspect]
     Indication: MYELODYSPLASTIC SYNDROME
     Route: 065
     Dates: start: 20070201, end: 20070401
  3. OMEPRAZOLE [Concomitant]
  4. DETROL [Concomitant]
  5. CLARINEX [Concomitant]
  6. VIDAZA [Concomitant]
     Dates: start: 20060701
  7. NASONEX [Concomitant]
  8. CALCIUM [Concomitant]
  9. VITAMIN CAP [Concomitant]
  10. BONIVA [Concomitant]
  11. LUNESTA [Concomitant]

REACTIONS (8)
  - ANTI-ERYTHROPOIETIN ANTIBODY POSITIVE [None]
  - APLASIA PURE RED CELL [None]
  - DEMENTIA [None]
  - MYCOBACTERIUM AVIUM COMPLEX INFECTION [None]
  - NEUTRALISING ANTIBODIES POSITIVE [None]
  - QUALITY OF LIFE DECREASED [None]
  - RENAL FAILURE [None]
  - URINARY TRACT INFECTION [None]
